FAERS Safety Report 7271904-X (Version None)
Quarter: 2011Q1

REPORT INFORMATION
  Report Type: 
  Country: None (occurrence: None)
  Receive Date: 20110126
  Receipt Date: 20110110
  Transmission Date: 20110831
  Serious: Yes (Death)
  Sender: FDA-Public Use
  Company Number: 1000011581

PATIENT
  Age: 26 Year
  Sex: Male
  Weight: 65 kg

DRUGS (9)
  1. DEROXAT (PAROXETINE HYDROCHLORIDE) [Suspect]
     Dates: start: 20090901
  2. DEROXAT (PAROXETINE HYDROCHLORIDE) [Suspect]
     Dates: start: 20100114
  3. MORPHINE [Suspect]
     Dosage: (ONCE)
     Dates: start: 20100114
  4. ALCOHOL (ETHANOL) [Suspect]
     Dosage: (ONCE)
     Dates: start: 20100114
  5. CYMBALTA (DULOXETINE HYDROCHLORIDE) (60 MILLIGRAM)(DULOXETINE HYDROCHL [Concomitant]
  6. ESCITALOPRAM [Suspect]
     Indication: DEPRESSION
     Dosage: 10 MG (10 MG, 1 IN 1 D), 2 OR 3 BOXES (ONCE)
     Dates: start: 20100114
  7. ESCITALOPRAM [Suspect]
     Indication: DEPRESSION
     Dosage: 10 MG (10 MG, 1 IN 1 D), 2 OR 3 BOXES (ONCE)
     Dates: start: 20091215
  8. OLMIFON (ADRAFINIL)(ADRAFINIL) [Concomitant]
  9. XANAX (ALPRAZOLAM) (0.5 MILLIGRAM) (ALPRAZOLAM) [Concomitant]

REACTIONS (2)
  - COMPLETED SUICIDE [None]
  - MULTIPLE DRUG OVERDOSE INTENTIONAL [None]
